FAERS Safety Report 21470334 (Version 1)
Quarter: 2022Q4

REPORT INFORMATION
  Report Type: Spontaneous
  Country: US (occurrence: US)
  Receive Date: 20221018
  Receipt Date: 20221018
  Transmission Date: 20230113
  Serious: No
  Sender: FDA-Public Use
  Company Number: US-JNJFOC-20221018071

PATIENT
  Age: 32 Year
  Sex: Male

DRUGS (1)
  1. TREMFYA [Suspect]
     Active Substance: GUSELKUMAB
     Indication: Psoriasis
     Route: 058
     Dates: start: 201905

REACTIONS (4)
  - Product dose omission issue [Unknown]
  - Needle issue [Unknown]
  - Product quality issue [Unknown]
  - Product leakage [Unknown]

NARRATIVE: CASE EVENT DATE: 20221002
